FAERS Safety Report 8473154-8 (Version None)
Quarter: 2012Q2

REPORT INFORMATION
  Report Type: 
  Country: None (occurrence: None)
  Receive Date: 20120627
  Receipt Date: 20120621
  Transmission Date: 20120825
  Serious: Yes (Other)
  Sender: FDA-Public Use
  Company Number: US-PFIZER INC-8-97156-004B

PATIENT
  Sex: Female
  Weight: 113 kg

DRUGS (2)
  1. EFFEXOR [Suspect]
     Indication: DEPRESSION
     Dosage: UNK
     Route: 048
     Dates: start: 19950101
  2. LODINE [Concomitant]
     Dosage: UNK
     Route: 048
     Dates: start: 19940101, end: 19970513

REACTIONS (2)
  - ERYTHEMA NODOSUM [None]
  - WOUND [None]
